FAERS Safety Report 9351208 (Version 2)
Quarter: 2013Q2

REPORT INFORMATION
  Report Type: Spontaneous
  Country: US (occurrence: US)
  Receive Date: 20130617
  Receipt Date: 20130621
  Transmission Date: 20140414
  Serious: Yes (Other)
  Sender: FDA-Public Use
  Company Number: US-PFIZER INC-2013178048

PATIENT
  Age: 47 Year
  Sex: Female

DRUGS (6)
  1. LYRICA [Suspect]
     Dosage: 150 MG, 2X/DAY
  2. PROTONIX [Suspect]
     Dosage: UNK
  3. LIPITOR [Suspect]
     Dosage: UNK
  4. DETROL LA [Suspect]
     Dosage: UNK
  5. SYNTHROID [Suspect]
     Dosage: UNK
  6. REMERON [Suspect]
     Dosage: UNK

REACTIONS (8)
  - Anxiety [Unknown]
  - Hallucination, auditory [Unknown]
  - Hallucination, visual [Unknown]
  - Arthralgia [Unknown]
  - Pain in extremity [Unknown]
  - Hypoaesthesia [Unknown]
  - Paraesthesia [Unknown]
  - Nerve injury [Unknown]
